FAERS Safety Report 18633448 (Version 1)
Quarter: 2020Q4

REPORT INFORMATION
  Report Type: Spontaneous
  Country: JP (occurrence: JP)
  Receive Date: 20201218
  Receipt Date: 20201218
  Transmission Date: 20210114
  Serious: Yes (Other)
  Sender: FDA-Public Use
  Company Number: JP-PFIZER INC-2020495076

PATIENT

DRUGS (1)
  1. INLYTA [Suspect]
     Active Substance: AXITINIB
     Dosage: 6 MG
     Route: 048

REACTIONS (3)
  - Oral pain [Unknown]
  - Cardio-respiratory arrest [Unknown]
  - Malaise [Unknown]
